FAERS Safety Report 9377752 (Version 1)
Quarter: 2013Q2

REPORT INFORMATION
  Report Type: Spontaneous
  Country: US (occurrence: None)
  Receive Date: 20130625
  Receipt Date: 20130625
  Transmission Date: 20140414
  Serious: Yes (Other)
  Sender: FDA-Public Use
  Company Number: SYM-2013-05084

PATIENT
  Age: 43 Year
  Sex: Male

DRUGS (2)
  1. TARGRETIN [Suspect]
     Indication: ANAPLASTIC LARGE-CELL LYMPHOMA
     Route: 048
  2. ONTAK [Suspect]
     Indication: ANAPLASTIC LARGE-CELL LYMPHOMA
     Route: 042

REACTIONS (10)
  - Condition aggravated [None]
  - Erythema [None]
  - Myalgia [None]
  - Capillary leak syndrome [None]
  - Fatigue [None]
  - Rash pustular [None]
  - Refusal of treatment by patient [None]
  - Post inflammatory pigmentation change [None]
  - Skin lesion [None]
  - Disease recurrence [None]
